FAERS Safety Report 5148814-7 (Version None)
Quarter: 2006Q4

REPORT INFORMATION
  Report Type: 
  Country: None (occurrence: None)
  Receive Date: 20061107
  Receipt Date: 20061031
  Transmission Date: 20070319
  Serious: Yes (Hospitalization, Other)
  Sender: FDA-Public Use
  Company Number: HQWYE368103NOV06

PATIENT
  Age: 22 Year
  Sex: Male

DRUGS (5)
  1. TYGACIL [Suspect]
     Indication: SKIN INFECTION
     Dosage: 50 MG 2X PER 1 DAY, INTRAMUSCULAR
     Route: 030
     Dates: start: 20060313, end: 20060330
  2. DURAGESIC-100 [Concomitant]
  3. RESTORIL [Concomitant]
  4. BACLOFEN [Concomitant]
  5. FLAGYL [Concomitant]

REACTIONS (2)
  - CONVULSION [None]
  - HEADACHE [None]
